FAERS Safety Report 12794902 (Version 1)
Quarter: 2016Q3

REPORT INFORMATION
  Report Type: Spontaneous
  Country: US (occurrence: US)
  Receive Date: 20160929
  Receipt Date: 20160929
  Transmission Date: 20161109
  Serious: No
  Sender: FDA-Public Use
  Company Number: US-BAUSCH-BL-2016-013595

PATIENT
  Sex: Male
  Weight: 118.04 kg

DRUGS (3)
  1. JUBLIA [Suspect]
     Active Substance: EFINACONAZOLE
     Route: 061
     Dates: start: 20160407, end: 20160604
  2. JUBLIA [Suspect]
     Active Substance: EFINACONAZOLE
     Indication: ONYCHOMYCOSIS
     Route: 061
     Dates: start: 201602
  3. CLOBETASOL [Concomitant]
     Active Substance: CLOBETASOL
     Indication: PRODUCT USED FOR UNKNOWN INDICATION
     Route: 061

REACTIONS (5)
  - Purulence [Recovered/Resolved]
  - Onychoclasis [Unknown]
  - Skin exfoliation [Unknown]
  - Dermatitis contact [Unknown]
  - Blister infected [Not Recovered/Not Resolved]

NARRATIVE: CASE EVENT DATE: 2016
